FAERS Safety Report 11120500 (Version 2)
Quarter: 2015Q2

REPORT INFORMATION
  Report Type: Spontaneous
  Country: ES (occurrence: ES)
  Receive Date: 20150518
  Receipt Date: 20150522
  Transmission Date: 20150821
  Serious: Yes (Death, Life-Threatening, Hospitalization, Other)
  Sender: FDA-Public Use
  Company Number: ES-ABBVIE-15P-144-1390993-00

PATIENT
  Age: 68 Year
  Sex: Female
  Weight: 52 kg

DRUGS (6)
  1. ALDACTONE [Concomitant]
     Active Substance: SPIRONOLACTONE
     Indication: PRODUCT USED FOR UNKNOWN INDICATION
     Dates: end: 20150512
  2. RIBAVIRIN. [Suspect]
     Active Substance: RIBAVIRIN
     Indication: HEPATITIS C
     Route: 048
     Dates: start: 20150504, end: 20150512
  3. MOVICOL [Concomitant]
     Active Substance: POLYETHYLENE GLYCOL 3350\POTASSIUM CHLORIDE\SODIUM BICARBONATE\SODIUM CHLORIDE
     Indication: PRODUCT USED FOR UNKNOWN INDICATION
     Route: 048
     Dates: end: 20150512
  4. VIEKIRAX [Suspect]
     Active Substance: OMBITASVIR\PARITAPREVIR\RITONAVIR
     Indication: HEPATITIS C
     Route: 048
     Dates: start: 20150504, end: 20150512
  5. EXVIERA [Suspect]
     Active Substance: DASABUVIR
     Indication: HEPATITIS C
     Route: 048
     Dates: start: 20150504, end: 20150512
  6. MASDIL [Interacting]
     Active Substance: DILTIAZEM HYDROCHLORIDE
     Indication: PRODUCT USED FOR UNKNOWN INDICATION
     Route: 048
     Dates: end: 20150512

REACTIONS (15)
  - Staphylococcal bacteraemia [Unknown]
  - Vomiting [Unknown]
  - Atrioventricular block [Recovered/Resolved]
  - Hyponatraemia [Unknown]
  - Acute prerenal failure [Unknown]
  - Chest pain [Unknown]
  - Constipation [Unknown]
  - Cardio-respiratory arrest [Fatal]
  - Pseudomonal bacteraemia [Unknown]
  - Anaemia [Unknown]
  - Nausea [Unknown]
  - Atrial fibrillation [Recovered/Resolved]
  - Aspiration [Unknown]
  - Drug interaction [Unknown]
  - Vomiting [Unknown]

NARRATIVE: CASE EVENT DATE: 201505
